FAERS Safety Report 15624601 (Version 1)
Quarter: 2018Q4

REPORT INFORMATION
  Report Type: Spontaneous
  Country: TR (occurrence: TR)
  Receive Date: 20181116
  Receipt Date: 20181116
  Transmission Date: 20190205
  Serious: Yes (Life-Threatening)
  Sender: FDA-Public Use
  Company Number: TR-UCBSA-2018050038

PATIENT
  Age: 30 Year
  Sex: Male
  Weight: 70 kg

DRUGS (6)
  1. KEPPRA [Suspect]
     Active Substance: LEVETIRACETAM
     Indication: OFF LABEL USE
  2. KEPPRA [Suspect]
     Active Substance: LEVETIRACETAM
     Indication: SUBARACHNOID HAEMORRHAGE
     Dosage: 500 MG, 2X/DAY (BID)
     Route: 042
     Dates: start: 20181024
  3. MAGNESIUM [Suspect]
     Active Substance: MAGNESIUM
     Indication: SUBARACHNOID HAEMORRHAGE
     Dosage: 1 AMPOULE, 3X/DAY (TID)
     Route: 042
     Dates: start: 20181024, end: 20181024
  4. PENTOTHAL [Concomitant]
     Active Substance: THIOPENTAL SODIUM
     Indication: SUBARACHNOID HAEMORRHAGE
     Dosage: UNK
     Route: 042
     Dates: start: 20181024
  5. INSULIN [Suspect]
     Active Substance: INSULIN NOS
     Indication: HYPERGLYCAEMIA
     Dosage: UNK
     Route: 042
     Dates: start: 20181024, end: 20181024
  6. MUCINEX [Concomitant]
     Active Substance: GUAIFENESIN
     Indication: SUBARACHNOID HAEMORRHAGE
     Dosage: UNK
     Route: 042
     Dates: start: 20181024

REACTIONS (4)
  - Supraventricular tachycardia [Recovering/Resolving]
  - Hypertension [Recovering/Resolving]
  - Off label use [Unknown]
  - Generalised erythema [Recovering/Resolving]

NARRATIVE: CASE EVENT DATE: 20181024
